FAERS Safety Report 8043149-7 (Version None)
Quarter: 2012Q1

REPORT INFORMATION
  Report Type: 
  Country: None (occurrence: None)
  Receive Date: 20120112
  Receipt Date: 20120110
  Transmission Date: 20120608
  Serious: Yes (Hospitalization)
  Sender: FDA-Public Use
  Company Number: PL-ABBOTT-12P-129-0891392-00

PATIENT
  Age: 30 Year
  Sex: Female

DRUGS (1)
  1. VALPROIC ACID [Suspect]
     Indication: CONVULSION

REACTIONS (3)
  - NAIL DISCOLOURATION [None]
  - ONYCHOLYSIS [None]
  - CYANOSIS [None]
